FAERS Safety Report 8552732-1 (Version None)
Quarter: 2012Q3

REPORT INFORMATION
  Report Type: 
  Country: None (occurrence: None)
  Receive Date: 20120731
  Receipt Date: 20120720
  Transmission Date: 20120928
  Serious: Yes (Hospitalization)
  Sender: FDA-Public Use
  Company Number: PHHY2012JP057921

PATIENT
  Age: 70 Year
  Sex: Male

DRUGS (9)
  1. NEORAL [Suspect]
     Dosage: 100 MG, DAILY
     Route: 048
     Dates: start: 20120705
  2. NEORAL [Suspect]
     Indication: INTERSTITIAL LUNG DISEASE
     Dosage: 150 MG, DAILY
     Route: 048
     Dates: start: 20110701, end: 20120704
  3. LANTUS [Concomitant]
     Dosage: 10 IU, UNK
  4. PREDNISOLONE [Concomitant]
     Dosage: 15 MG, UNK
     Route: 048
     Dates: start: 20110501
  5. VERAPAMIL HCL [Concomitant]
     Dosage: 120 MG, UNK
     Route: 048
  6. CYCLOPHOSPHAMIDE [Concomitant]
     Dosage: 50 MG, UNK
     Route: 048
     Dates: start: 20120401
  7. GLUFAST [Concomitant]
     Dosage: 15 MG, UNK
     Route: 048
  8. WARFARIN SODIUM [Concomitant]
     Dosage: 2.5 MG, UNK
     Route: 048
  9. MIGLITOL [Concomitant]
     Dosage: 150 MG, UNK
     Route: 048

REACTIONS (6)
  - ALANINE AMINOTRANSFERASE INCREASED [None]
  - BLOOD ALKALINE PHOSPHATASE INCREASED [None]
  - ASPARTATE AMINOTRANSFERASE INCREASED [None]
  - GAMMA-GLUTAMYLTRANSFERASE INCREASED [None]
  - BLOOD LACTATE DEHYDROGENASE INCREASED [None]
  - LIVER DISORDER [None]
